FAERS Safety Report 8488089-4 (Version None)
Quarter: 2012Q3

REPORT INFORMATION
  Report Type: 
  Country: None (occurrence: None)
  Receive Date: 20120705
  Receipt Date: 20120628
  Transmission Date: 20120928
  Serious: Yes (Other)
  Sender: FDA-Public Use
  Company Number: VE-PFIZER INC-2012149548

PATIENT
  Age: 50 Year
  Sex: Female

DRUGS (1)
  1. CADUET [Suspect]
     Dosage: [AMLODIPINE BESILATE 5 MG/ATORVASTATIN CALCIUM 20MG], 1X/DAY
     Route: 048
     Dates: start: 20090101

REACTIONS (1)
  - UTERINE LEIOMYOMA [None]
